FAERS Safety Report 8296370-7 (Version None)
Quarter: 2012Q2

REPORT INFORMATION
  Report Type: 
  Country: None (occurrence: None)
  Receive Date: 20120418
  Receipt Date: 20120411
  Transmission Date: 20120825
  Serious: Yes (Hospitalization)
  Sender: FDA-Public Use
  Company Number: NL-MEDIMMUNE-MEDI-0013912

PATIENT
  Sex: Male

DRUGS (2)
  1. SYNAGIS [Suspect]
     Indication: PREMATURE BABY
     Route: 030
     Dates: start: 20110908, end: 20111104
  2. SYNAGIS [Suspect]
     Route: 030
     Dates: start: 20120312, end: 20120410

REACTIONS (4)
  - ENTERAL NUTRITION [None]
  - DYSPNOEA [None]
  - WHEEZING [None]
  - RESPIRATORY RATE INCREASED [None]
